FAERS Safety Report 13918876 (Version 2)
Quarter: 2017Q3

REPORT INFORMATION
  Report Type: Spontaneous
  Country: US (occurrence: US)
  Receive Date: 20170830
  Receipt Date: 20170926
  Transmission Date: 20171127
  Serious: No
  Sender: FDA-Public Use
  Company Number: US-BRISTOL-MYERS SQUIBB COMPANY-BMS-2017-077194

PATIENT
  Sex: Male

DRUGS (1)
  1. ABILIFY [Suspect]
     Active Substance: ARIPIPRAZOLE
     Indication: PRODUCT USE IN UNAPPROVED INDICATION
     Dosage: 2 MG, UNK
     Route: 065
     Dates: start: 20110101

REACTIONS (6)
  - Injury [Unknown]
  - Emotional distress [Unknown]
  - Economic problem [Unknown]
  - Mental disorder [Unknown]
  - Gambling [Unknown]
  - Product use in unapproved indication [Unknown]
